FAERS Safety Report 16302030 (Version 2)
Quarter: 2019Q2

REPORT INFORMATION
  Report Type: Spontaneous
  Country: JP (occurrence: JP)
  Receive Date: 20190512
  Receipt Date: 20190522
  Transmission Date: 20190711
  Serious: Yes (Other)
  Sender: FDA-Public Use
  Company Number: GXJP2019JP000892

PATIENT
  Age: 69 Year
  Sex: Male

DRUGS (3)
  1. AMVALO COMBINATION TABLET [Suspect]
     Active Substance: AMLODIPINE\VALSARTAN
     Indication: HYPERTENSION
     Dosage: 1 DF, QD
     Route: 048
  2. VALSARTAN TAB [Suspect]
     Active Substance: VALSARTAN
     Indication: HYPERTENSION
     Dosage: 40 MG, UNK
     Route: 048
  3. CANDESARTAN. [Concomitant]
     Active Substance: CANDESARTAN
     Indication: HYPERTENSION
     Dosage: UNK
     Route: 048
     Dates: start: 20190514

REACTIONS (3)
  - Blood pressure increased [Recovering/Resolving]
  - Overdose [Unknown]
  - Glaucoma [Unknown]

NARRATIVE: CASE EVENT DATE: 20190422
